FAERS Safety Report 8110987-1 (Version None)
Quarter: 2012Q1

REPORT INFORMATION
  Report Type: 
  Country: None (occurrence: None)
  Receive Date: 20120203
  Receipt Date: 20110128
  Transmission Date: 20120608
  Serious: No
  Sender: FDA-Public Use
  Company Number: US-GLAXOSMITHKLINE-A0910218A

PATIENT
  Age: 25 Year
  Sex: Male

DRUGS (4)
  1. LITHIUM CARBONATE [Concomitant]
  2. LAMOTRIGINE [Suspect]
     Indication: BIPOLAR DISORDER
     Dosage: 50MG PER DAY
     Route: 048
  3. DOXYCYCLINE [Suspect]
  4. CLONAZEPAM [Concomitant]

REACTIONS (1)
  - RASH [None]
